FAERS Safety Report 6631323-3 (Version None)
Quarter: 2010Q1

REPORT INFORMATION
  Report Type: 
  Country: None (occurrence: None)
  Receive Date: 20100311
  Receipt Date: 20100311
  Transmission Date: 20100710
  Serious: Yes (Other)
  Sender: FDA-Public Use
  Company Number: None

PATIENT
  Age: 57 Year
  Sex: Female
  Weight: 92.9874 kg

DRUGS (1)
  1. WAL-ZAN 150MG WALGREENS [Suspect]
     Indication: GASTRIC ULCER
     Dosage: 150 MG ONCE A DAY PO
     Route: 048
     Dates: start: 20100222, end: 20100309

REACTIONS (1)
  - DRUG HYPERSENSITIVITY [None]
